FAERS Safety Report 23350669 (Version 1)
Quarter: 2023Q4

REPORT INFORMATION
  Report Type: Spontaneous
  Country: US (occurrence: US)
  Receive Date: 20231229
  Receipt Date: 20231229
  Transmission Date: 20240110
  Serious: Yes (Hospitalization, Other)
  Sender: FDA-Public Use
  Company Number: US-PFIZER INC-202201169128

PATIENT
  Age: 72 Year
  Sex: Female
  Weight: 61.23 kg

DRUGS (2)
  1. VYNDAMAX [Suspect]
     Active Substance: TAFAMIDIS
     Indication: Amyloidosis
     Dosage: 61 MG
  2. VYNDAMAX [Suspect]
     Active Substance: TAFAMIDIS
     Indication: Acquired ATTR amyloidosis

REACTIONS (7)
  - Intestinal obstruction [Recovering/Resolving]
  - Pancreatic enlargement [Recovering/Resolving]
  - Gallbladder disorder [Recovering/Resolving]
  - Abdominal pain [Unknown]
  - Hyperchlorhydria [Unknown]
  - Vomiting [Unknown]
  - Abdominal distension [Unknown]

NARRATIVE: CASE EVENT DATE: 20231201
